FAERS Safety Report 13501103 (Version 1)
Quarter: 2017Q2

REPORT INFORMATION
  Report Type: Spontaneous
  Country: US (occurrence: US)
  Receive Date: 20170501
  Receipt Date: 20170501
  Transmission Date: 20170830
  Serious: No
  Sender: FDA-Public Use
  Company Number: US-ROCHE-1871532

PATIENT
  Age: 69 Year
  Sex: Female

DRUGS (3)
  1. ESBRIET [Suspect]
     Active Substance: PIRFENIDONE
     Dosage: 3 PILLS 3 TIMES PER DAY
     Route: 065
     Dates: start: 201612, end: 20161221
  2. ESBRIET [Suspect]
     Active Substance: PIRFENIDONE
     Indication: PRODUCT USED FOR UNKNOWN INDICATION
     Dosage: 1 PILL 3 TIMES PER DAY 1
     Route: 065
     Dates: start: 20161128, end: 2016
  3. ESBRIET [Suspect]
     Active Substance: PIRFENIDONE
     Dosage: 2 PILLS 3 TIMES PER DAY
     Route: 065
     Dates: start: 2016

REACTIONS (5)
  - Asthenia [Unknown]
  - Fatigue [Unknown]
  - Decreased appetite [Unknown]
  - Malaise [Unknown]
  - Dyspepsia [Unknown]

NARRATIVE: CASE EVENT DATE: 201612
